FAERS Safety Report 17095123 (Version 3)
Quarter: 2020Q3

REPORT INFORMATION
  Report Type: Spontaneous
  Country: PL (occurrence: PL)
  Receive Date: 20191130
  Receipt Date: 20200924
  Transmission Date: 20201102
  Serious: Yes (Other)
  Sender: FDA-Public Use
  Company Number: PL-UCBSA-2019049148

PATIENT
  Age: 29 Year
  Sex: Male

DRUGS (10)
  1. VALPROIC ACID. [Suspect]
     Active Substance: VALPROIC ACID
     Indication: PARTIAL SEIZURES
     Dosage: 900 MG DAILY
  2. LACOSAMIDE. [Suspect]
     Active Substance: LACOSAMIDE
     Indication: PARTIAL SEIZURES
     Dosage: UNK
  3. TOPIRAMATE. [Suspect]
     Active Substance: TOPIRAMATE
     Indication: PARTIAL SEIZURES
     Dosage: UNK
  4. PREGABALIN. [Suspect]
     Active Substance: PREGABALIN
     Indication: PARTIAL SEIZURES
     Dosage: UNK
  5. LACOSAMIDE. [Suspect]
     Active Substance: LACOSAMIDE
     Indication: SEIZURE
  6. PREGABALIN. [Suspect]
     Active Substance: PREGABALIN
     Indication: EPILEPSY
  7. OXCARBAZEPINE. [Suspect]
     Active Substance: OXCARBAZEPINE
     Indication: EPILEPSY
  8. VALPROIC ACID. [Suspect]
     Active Substance: VALPROIC ACID
     Indication: EPILEPSY
  9. OXCARBAZEPINE. [Suspect]
     Active Substance: OXCARBAZEPINE
     Indication: PARTIAL SEIZURES
     Dosage: UNK
  10. TOPIRAMATE. [Suspect]
     Active Substance: TOPIRAMATE
     Indication: EPILEPSY

REACTIONS (30)
  - Petit mal epilepsy [Recovered/Resolved]
  - Decreased appetite [Recovered/Resolved]
  - Anxiety [Unknown]
  - Sensory disturbance [Unknown]
  - Loss of libido [Unknown]
  - Bone pain [Unknown]
  - Diarrhoea [Unknown]
  - Restlessness [Unknown]
  - Erectile dysfunction [Unknown]
  - Dizziness [Unknown]
  - Memory impairment [Unknown]
  - Dry mouth [Unknown]
  - Drug ineffective [Unknown]
  - Dissociation [Unknown]
  - Photophobia [Unknown]
  - Myoclonic epilepsy [Unknown]
  - Generalised tonic-clonic seizure [Recovered/Resolved]
  - Nystagmus [Unknown]
  - Tremor [Unknown]
  - Fear [Unknown]
  - Somnolence [Unknown]
  - Aggression [Unknown]
  - Depressed mood [Unknown]
  - Intellectual disability [Unknown]
  - Palpitations [Unknown]
  - Speech disorder [Unknown]
  - Fall [Unknown]
  - Bradykinesia [Unknown]
  - Weight decreased [Unknown]
  - Feeling abnormal [Unknown]

NARRATIVE: CASE EVENT DATE: 201906
